FAERS Safety Report 9526622 (Version 1)
Quarter: 2013Q3

REPORT INFORMATION
  Report Type: Spontaneous
  Country: GB (occurrence: GB)
  Receive Date: 20130916
  Receipt Date: 20130916
  Transmission Date: 20140515
  Serious: Yes (Other)
  Sender: FDA-Public Use
  Company Number: PHHY2013GB100807

PATIENT
  Age: 78 Year
  Sex: Female

DRUGS (6)
  1. SERTRALINE HYDROCHLORIDE [Suspect]
     Dosage: 100 MG, QD
     Route: 048
  2. SERTRALINE HYDROCHLORIDE [Suspect]
     Dosage: 150 MG, QD
     Route: 048
     Dates: start: 201308, end: 20130827
  3. BACLOFEN [Concomitant]
  4. ADCAL-D3 [Concomitant]
     Dosage: 1 DF, BID
     Route: 048
  5. SIMVASTATIN [Concomitant]
     Dosage: 20 MG, QD AT NIGHT
  6. ZOPICLONE [Concomitant]
     Dosage: 7.5 MG, QD AT NIGHT
     Route: 048

REACTIONS (4)
  - Fall [Unknown]
  - Serotonin syndrome [Recovering/Resolving]
  - Muscle rigidity [Unknown]
  - Muscle contracture [Unknown]
